FAERS Safety Report 23543710 (Version 1)
Quarter: 2024Q1

REPORT INFORMATION
  Report Type: Spontaneous
  Country: US (occurrence: None)
  Receive Date: 20240216
  Receipt Date: 20240216
  Transmission Date: 20240410
  Serious: No
  Sender: FDA-Public Use
  Company Number: None

PATIENT
  Age: 5 Year
  Sex: Male
  Weight: 24.3 kg

DRUGS (3)
  1. AMOXICILLIN [Suspect]
     Active Substance: AMOXICILLIN
     Indication: Pharyngitis streptococcal
     Dosage: OTHER QUANTITY : 7.5 TEASPOON(S);?FREQUENCY : TWICE A DAY;?
     Route: 048
     Dates: start: 20240212, end: 20240212
  2. Daily vitamin gummies [Concomitant]
  3. Digestive Advantage probiotic gummies [Concomitant]

REACTIONS (4)
  - Hallucination [None]
  - Mydriasis [None]
  - Nightmare [None]
  - Sleep terror [None]

NARRATIVE: CASE EVENT DATE: 20240212
